FAERS Safety Report 9494619 (Version 4)
Quarter: 2013Q4

REPORT INFORMATION
  Report Type: Spontaneous
  Country: US (occurrence: US)
  Receive Date: 20130903
  Receipt Date: 20131021
  Transmission Date: 20140711
  Serious: No
  Sender: FDA-Public Use
  Company Number: US-009507513-1308USA007188

PATIENT
  Age: 21 Year
  Sex: Female
  Weight: 81.18 kg

DRUGS (1)
  1. IMPLANON [Suspect]
     Indication: CONTRACEPTION
     Dosage: 1 DF, UNK
     Route: 059
     Dates: start: 20111005, end: 20130814

REACTIONS (2)
  - Menorrhagia [Recovered/Resolved]
  - Device breakage [Recovered/Resolved]
